FAERS Safety Report 5849853-0 (Version None)
Quarter: 2008Q3

REPORT INFORMATION
  Report Type: 
  Country: None (occurrence: None)
  Receive Date: 20080819
  Receipt Date: 20080807
  Transmission Date: 20090109
  Serious: Yes (Life-Threatening)
  Sender: FDA-Public Use
  Company Number: NL-ASTRAZENECA-2008AC02189

PATIENT
  Age: 8494 Day
  Sex: Female
  Weight: 90 kg

DRUGS (1)
  1. SEROQUEL [Suspect]
     Route: 048
     Dates: start: 20070101

REACTIONS (2)
  - DRUG TOXICITY [None]
  - FOOD INTERACTION [None]
